FAERS Safety Report 7593592-5 (Version None)
Quarter: 2011Q3

REPORT INFORMATION
  Report Type: 
  Country: None (occurrence: None)
  Receive Date: 20110706
  Receipt Date: 20110614
  Transmission Date: 20111222
  Serious: Yes (Hospitalization)
  Sender: FDA-Public Use
  Company Number: FR-BAYER-2011-051569

PATIENT
  Age: 26 Year
  Sex: Male

DRUGS (3)
  1. AUGMENTIN '125' [Concomitant]
     Indication: ACUTE TONSILLITIS
  2. FLAGYL [Suspect]
     Indication: ACUTE TONSILLITIS
     Dosage: 500 MG, TID
  3. CIPROFLOXACIN [Suspect]
     Indication: ACUTE TONSILLITIS
     Dosage: 500 MG, TID

REACTIONS (9)
  - PARAESTHESIA [None]
  - MUSCLE SPASMS [None]
  - BLOOD CREATININE INCREASED [None]
  - ASTHENIA [None]
  - MUSCULOSKELETAL STIFFNESS [None]
  - BLOOD BILIRUBIN INCREASED [None]
  - SPEECH DISORDER [None]
  - TRANSAMINASES INCREASED [None]
  - OROPHARYNGEAL PAIN [None]
